FAERS Safety Report 8093460 (Version 2)
Quarter: 2013Q1

REPORT INFORMATION
  Report Type: Spontaneous
  Country: US (occurrence: None)
  Receive Date: 20110809
  Receipt Date: 20121017
  Transmission Date: 20140127
  Serious: Yes (Other)
  Sender: FDA-Public Use
  Company Number: 2011MA009602

PATIENT
  Sex: Female

DRUGS (7)
  1. METOCLOPRAMIDE [Suspect]
     Indication: GASTROOESOPHAGEAL REFLUX DISEASE
     Route: 048
     Dates: start: 20070117, end: 20110508
  2. METOCLOPRAMIDE [Suspect]
     Indication: GASTROOESOPHAGEAL REFLUX DISEASE
     Route: 048
     Dates: start: 20070117, end: 20110508
  3. ATIVAN [Concomitant]
  4. BUPAP [Concomitant]
  5. MECLIZINE [Concomitant]
  6. MAXIFED-G [Concomitant]
  7. PROMETHAZINE [Concomitant]

REACTIONS (10)
  - Tardive dyskinesia [None]
  - Economic problem [None]
  - Emotional disorder [None]
  - Headache [None]
  - Anxiety [None]
  - Sleep disorder [None]
  - Nausea [None]
  - Constipation [None]
  - Excessive eye blinking [None]
  - Dyskinesia [None]
